FAERS Safety Report 25776130 (Version 1)
Quarter: 2025Q3

REPORT INFORMATION
  Report Type: Spontaneous
  Country: US (occurrence: US)
  Receive Date: 20250909
  Receipt Date: 20250909
  Transmission Date: 20251021
  Serious: No
  Sender: DOMPE FARMACEUTICI
  Company Number: US-FARMAPROD-202408-2924

PATIENT
  Age: 80 Year
  Sex: Female
  Weight: 52.16 kg

DRUGS (14)
  1. OXERVATE [Suspect]
     Active Substance: CENEGERMIN-BKBJ
     Indication: Neurotrophic keratopathy
     Route: 047
     Dates: start: 20240804
  2. OFLOXACIN [Concomitant]
     Active Substance: OFLOXACIN
  3. CLOTRIMAZOLE AND BETAMETHASONE DIPROPIONATE [Concomitant]
     Active Substance: BETAMETHASONE\BETAMETHASONE DIPROPIONATE\CLOTRIMAZOLE
  4. LOSARTAN POTASSIUM [Concomitant]
     Active Substance: LOSARTAN POTASSIUM
  5. NABUMETONE [Concomitant]
     Active Substance: NABUMETONE
  6. ARTIFICIAL TEARS [Concomitant]
  7. PREDNISOLONE ACETATE [Concomitant]
     Active Substance: PREDNISOLONE ACETATE
  8. ACULAR [Concomitant]
     Active Substance: KETOROLAC TROMETHAMINE
  9. ACETAMINOPHEN [Concomitant]
     Active Substance: ACETAMINOPHEN
  10. MECLIZINE HYDROCHLORIDE [Concomitant]
     Active Substance: MECLIZINE HYDROCHLORIDE
  11. FAMOTIDINE [Concomitant]
     Active Substance: FAMOTIDINE
  12. DOCUSATE SODIUM [Concomitant]
     Active Substance: DOCUSATE SODIUM
  13. LORATADINE [Concomitant]
     Active Substance: LORATADINE
  14. ALAWAY [Concomitant]
     Active Substance: KETOTIFEN FUMARATE

REACTIONS (3)
  - Eye swelling [Unknown]
  - Off label use [Unknown]
  - Eye pain [Unknown]

NARRATIVE: CASE EVENT DATE: 20240805
